FAERS Safety Report 15697837 (Version 1)
Quarter: 2018Q4

REPORT INFORMATION
  Report Type: Spontaneous
  Country: US (occurrence: US)
  Receive Date: 20181126
  Receipt Date: 20181126
  Transmission Date: 20190205
  Serious: No
  Sender: FDA-Public Use
  Company Number: None

PATIENT

DRUGS (2)
  1. GAMUNEX-C [Suspect]
     Active Substance: HUMAN IMMUNOGLOBULIN G
     Indication: CEREBELLAR ATAXIA
     Dosage: ?          OTHER FREQUENCY:Q3WEEKS ;?
     Route: 042
     Dates: start: 20180721
  2. GAMUNEX-C [Suspect]
     Active Substance: HUMAN IMMUNOGLOBULIN G
     Indication: CEREBELLAR ATAXIA
     Dosage: ?          OTHER FREQUENCY:EVERY 3 WEEKS;?

REACTIONS (3)
  - Malaise [None]
  - Neck pain [None]
  - Sleep deficit [None]
